FAERS Safety Report 12319540 (Version 1)
Quarter: 2016Q2

REPORT INFORMATION
  Report Type: Spontaneous
  Country: US (occurrence: US)
  Receive Date: 20160429
  Receipt Date: 20160429
  Transmission Date: 20160815
  Serious: No
  Sender: FDA-Public Use
  Company Number: US-ROCHE-1690020

PATIENT
  Age: 77 Year
  Sex: Female

DRUGS (2)
  1. BEVACIZUMAB [Suspect]
     Active Substance: BEVACIZUMAB
     Indication: HEPATIC CANCER
     Route: 042
  2. ERLOTINIB [Concomitant]
     Active Substance: ERLOTINIB
     Route: 048

REACTIONS (2)
  - Chest pain [Unknown]
  - Hypertension [Unknown]
